FAERS Safety Report 10846486 (Version 2)
Quarter: 2015Q2

REPORT INFORMATION
  Report Type: Spontaneous
  Country: ES (occurrence: ES)
  Receive Date: 20150220
  Receipt Date: 20150501
  Transmission Date: 20150821
  Serious: Yes (Other)
  Sender: FDA-Public Use
  Company Number: ES-TEVA-540729ISR

PATIENT
  Age: 24 Year
  Sex: Female

DRUGS (4)
  1. PACLITAXEL. [Suspect]
     Active Substance: PACLITAXEL
     Dosage: 171.99 MG (28.66 ML)
     Dates: start: 20150115, end: 20150115
  2. PACLITAXEL. [Suspect]
     Active Substance: PACLITAXEL
     Indication: INVASIVE DUCTAL BREAST CARCINOMA
     Dosage: 171.99 MG (28.66 ML)
     Route: 042
     Dates: start: 20150108, end: 20150108
  3. PACLITAXEL. [Suspect]
     Active Substance: PACLITAXEL
     Dosage: 171.99 MG (28.66 ML)
     Dates: start: 20150122, end: 20150122
  4. PACLITAXEL. [Suspect]
     Active Substance: PACLITAXEL
     Dosage: DESENSITIZATION TREATMENT
     Dates: start: 20150204

REACTIONS (8)
  - Oxygen saturation decreased [Recovered/Resolved]
  - Hypersensitivity [Recovered/Resolved]
  - Erythema [Recovered/Resolved]
  - Infusion related reaction [Recovered/Resolved]
  - Erythema [Recovered/Resolved]
  - Feeling hot [Recovered/Resolved]
  - Vomiting [Recovered/Resolved]
  - Bronchospasm [Recovered/Resolved]

NARRATIVE: CASE EVENT DATE: 20150108
